FAERS Safety Report 18452043 (Version 2)
Quarter: 2020Q4

REPORT INFORMATION
  Report Type: Spontaneous
  Country: US (occurrence: US)
  Receive Date: 20201102
  Receipt Date: 20201104
  Transmission Date: 20210114
  Serious: Yes (Other)
  Sender: FDA-Public Use
  Company Number: US-GLAXOSMITHKLINE-US2020214862

PATIENT
  Sex: Male

DRUGS (1)
  1. INFLUENZA VACCINE QUADRIVALENT UNSPECIFIED SEASON [Suspect]
     Active Substance: INFLUENZA VIRUS VACCINE QUADRIVALENT TYPE A+B
     Indication: PROPHYLAXIS

REACTIONS (1)
  - Deafness unilateral [Unknown]
